FAERS Safety Report 13478239 (Version 1)
Quarter: 2017Q2

REPORT INFORMATION
  Report Type: Not Available
  Country: AU (occurrence: AU)
  Receive Date: 20170425
  Receipt Date: 20170425
  Transmission Date: 20170830
  Serious: Yes (Death, Congenital Anomaly)
  Sender: FDA-Public Use
  Company Number: AU-ANIPHARMA-2017-AU-000005

PATIENT
  Sex: 0

DRUGS (4)
  1. ALPRAZOLAM (NON-SPECIFIC) [Suspect]
     Active Substance: ALPRAZOLAM
     Route: 015
  2. TRANYLCYPROMINE [Suspect]
     Active Substance: TRANYLCYPROMINE
     Route: 015
  3. DIAZEPAM. [Suspect]
     Active Substance: DIAZEPAM
     Route: 015
  4. PIMOZIDE. [Suspect]
     Active Substance: PIMOZIDE
     Route: 015

REACTIONS (4)
  - Atrioventricular septal defect [Not Recovered/Not Resolved]
  - Drug interaction [Unknown]
  - Foetal heart rate abnormal [Fatal]
  - Dysmorphism [Not Recovered/Not Resolved]
